FAERS Safety Report 17097350 (Version 1)
Quarter: 2019Q4

REPORT INFORMATION
  Report Type: Spontaneous
  Country: CH (occurrence: CH)
  Receive Date: 20191202
  Receipt Date: 20191202
  Transmission Date: 20200122
  Serious: Yes (Other)
  Sender: FDA-Public Use
  Company Number: CH-GILEAD-2019-0438794

PATIENT
  Sex: Male

DRUGS (13)
  1. SURMONTIL [Concomitant]
     Active Substance: TRIMIPRAMINE MALEATE
  2. DARUNAVIR;RITONAVIR [Concomitant]
     Active Substance: DARUNAVIR\RITONAVIR
     Dosage: UNK
     Dates: start: 200807, end: 201701
  3. PREGABALIN. [Concomitant]
     Active Substance: PREGABALIN
  4. EMTRICITABINE/TENOFOVIR DF [Suspect]
     Active Substance: EMTRICITABINE
     Indication: HIV INFECTION
     Dosage: UNK
     Route: 065
     Dates: end: 201701
  5. KEPPRA [Concomitant]
     Active Substance: LEVETIRACETAM
  6. RAMIPRIL. [Concomitant]
     Active Substance: RAMIPRIL
  7. TEMESTA [LORAZEPAM] [Concomitant]
     Active Substance: LORAZEPAM
  8. FOSAMAX [Concomitant]
     Active Substance: ALENDRONATE SODIUM
  9. RALTEGRAVIR. [Concomitant]
     Active Substance: RALTEGRAVIR
     Dosage: UNK
     Dates: start: 200807, end: 201701
  10. CELSENTRI [Concomitant]
     Active Substance: MARAVIROC
  11. LEVETIRACETAM. [Concomitant]
     Active Substance: LEVETIRACETAM
  12. DAFALGAN [Concomitant]
     Active Substance: ACETAMINOPHEN
  13. VI DE 3 [Concomitant]

REACTIONS (3)
  - Osteoporosis [Unknown]
  - Genotype drug resistance test positive [Unknown]
  - Osteonecrosis [Unknown]

NARRATIVE: CASE EVENT DATE: 2008
